FAERS Safety Report 19108435 (Version 1)
Quarter: 2021Q2

REPORT INFORMATION
  Report Type: Other
  Country: CN (occurrence: CN)
  Receive Date: 20210408
  Receipt Date: 20210408
  Transmission Date: 20210717
  Serious: Yes (Other)
  Sender: FDA-Public Use
  Company Number: CN-ROCHE-2803819

PATIENT

DRUGS (10)
  1. RITUXIMAB. [Suspect]
     Active Substance: RITUXIMAB
     Indication: B-CELL LYMPHOMA
  2. CAFFEINE;PARACETAMOL [Concomitant]
     Active Substance: ACETAMINOPHEN\CAFFEINE
     Indication: ANALGESIC THERAPY
  3. RITUXIMAB. [Suspect]
     Active Substance: RITUXIMAB
     Indication: DIFFUSE LARGE B-CELL LYMPHOMA
     Dosage: GIVEN ON DAY 1 OF EACH CHEMOTHERAPY CYCLE, 28 DAYS WAS 1 CYCLE OF TREATMENT
     Route: 041
  4. DIPHENHYDRAMINE. [Concomitant]
     Active Substance: DIPHENHYDRAMINE
     Dosage: 30 MINUTES BEFORE GIVEN RITUXIMAB
     Route: 048
  5. RITUXIMAB. [Suspect]
     Active Substance: RITUXIMAB
     Indication: IMMUNE THROMBOCYTOPENIA
  6. DEXAMETHASONE. [Concomitant]
     Active Substance: DEXAMETHASONE
     Indication: ALLERGY PROPHYLAXIS
     Dosage: GIVEN BEFORE ADMINISTRATED RITUXIMAB
     Route: 041
  7. RITUXIMAB. [Suspect]
     Active Substance: RITUXIMAB
     Indication: CHRONIC LYMPHOCYTIC LEUKAEMIA
  8. RITUXIMAB. [Suspect]
     Active Substance: RITUXIMAB
     Indication: MANTLE CELL LYMPHOMA
  9. CAFFEINE;PARACETAMOL [Concomitant]
     Active Substance: ACETAMINOPHEN\CAFFEINE
     Indication: PYREXIA
     Dosage: DF= TABLETS; 30 MINUTES BEFORE GIVEN RITUXIMAB
     Route: 048
  10. RITUXIMAB. [Suspect]
     Active Substance: RITUXIMAB
     Indication: EXTRANODAL MARGINAL ZONE B-CELL LYMPHOMA (MALT TYPE)

REACTIONS (22)
  - Throat tightness [Recovered/Resolved]
  - Rash [Unknown]
  - Anaphylactic shock [Recovered/Resolved]
  - Off label use [Unknown]
  - Flushing [Unknown]
  - Temperature intolerance [Unknown]
  - Chills [Unknown]
  - Cyanosis [Recovered/Resolved]
  - Discomfort [Unknown]
  - Hyperpyrexia [Unknown]
  - Hypotension [Unknown]
  - Headache [Unknown]
  - Tumour pain [Unknown]
  - Tachypnoea [Recovered/Resolved]
  - Urticaria [Unknown]
  - Abdominal pain [Unknown]
  - Hypoxia [Recovered/Resolved]
  - Cardiac failure [Unknown]
  - Pruritus [Unknown]
  - Dyspnoea [Recovered/Resolved]
  - Vomiting [Unknown]
  - Diarrhoea [Unknown]
